FAERS Safety Report 25077315 (Version 1)
Quarter: 2025Q1

REPORT INFORMATION
  Report Type: Spontaneous
  Country: CA (occurrence: CA)
  Receive Date: 20250314
  Receipt Date: 20250314
  Transmission Date: 20250409
  Serious: Yes (Death)
  Sender: ROCHE
  Company Number: CA-ROCHE-10000225219

PATIENT
  Age: 88 Year
  Sex: Female

DRUGS (30)
  1. ACTEMRA [Suspect]
     Active Substance: TOCILIZUMAB
     Indication: COVID-19
     Route: 065
  2. ACETAMINOPHEN [Concomitant]
     Active Substance: ACETAMINOPHEN
  3. ASPIRIN [Concomitant]
     Active Substance: ASPIRIN
  4. AZITHROMYCIN [Concomitant]
     Active Substance: AZITHROMYCIN
  5. CALCIUM [Concomitant]
     Active Substance: CALCIUM
  6. CANDESARTAN [Concomitant]
     Active Substance: CANDESARTAN
  7. CEFTRIAXONE FORINJECTION USP [Concomitant]
  8. CHLORHEXIDINE [Concomitant]
     Active Substance: CHLORHEXIDINE
  9. CICLESONIDE [Concomitant]
     Active Substance: CICLESONIDE
  10. DILTIAZEM [Concomitant]
     Active Substance: DILTIAZEM
  11. EZETIMIBE [Concomitant]
     Active Substance: EZETIMIBE
  12. FRAGMIN [Concomitant]
     Active Substance: DALTEPARIN SODIUM
  13. FUROSEMIDE [Concomitant]
     Active Substance: FUROSEMIDE
     Route: 065
  14. HALOPERIDOL [Concomitant]
     Active Substance: HALOPERIDOL
  15. HUMALOG [Concomitant]
     Active Substance: INSULIN LISPRO
  16. HYDROMORPHONE [Concomitant]
     Active Substance: HYDROMORPHONE
  17. IPRATROPIUM [Concomitant]
     Active Substance: IPRATROPIUM
  18. IRON [Concomitant]
     Active Substance: IRON
  19. LACTULOSE [Concomitant]
     Active Substance: LACTULOSE
  20. LINAGLIPTIN [Concomitant]
     Active Substance: LINAGLIPTIN
  21. MAGNESIUM [Concomitant]
     Active Substance: MAGNESIUM
  22. METFORMIN [Concomitant]
     Active Substance: METFORMIN HYDROCHLORIDE
  23. METHYLPREDNISOLONE [Concomitant]
     Active Substance: METHYLPREDNISOLONE
  24. PANTOPRAZOLE [Concomitant]
     Active Substance: PANTOPRAZOLE
  25. POTASSIUM [Concomitant]
     Active Substance: POTASSIUM
  26. PREGABALIN [Concomitant]
     Active Substance: PREGABALIN
  27. RISEDRONATE SODIUM [Concomitant]
     Active Substance: RISEDRONATE SODIUM
  28. ROSUVASTATIN [Concomitant]
     Active Substance: ROSUVASTATIN
  29. ALBUTEROL [Concomitant]
     Active Substance: ALBUTEROL
  30. PIPERACILLIN SODIUM\TAZOBACTAM SODIUM [Concomitant]
     Active Substance: PIPERACILLIN SODIUM\TAZOBACTAM SODIUM

REACTIONS (9)
  - Ammonia increased [Fatal]
  - Blood lactic acid increased [Fatal]
  - Hepatic failure [Fatal]
  - Hepatic function abnormal [Fatal]
  - Hypoxia [Fatal]
  - International normalised ratio increased [Fatal]
  - Liver function test increased [Fatal]
  - Liver injury [Fatal]
  - Multiple organ dysfunction syndrome [Fatal]
